FAERS Safety Report 14995695 (Version 1)
Quarter: 2018Q2

REPORT INFORMATION
  Report Type: Spontaneous
  Country: US (occurrence: US)
  Receive Date: 20180521
  Receipt Date: 20180521
  Transmission Date: 20180711
  Serious: Yes (Other)
  Sender: FDA-Public Use
  Company Number: None

PATIENT
  Age: 43 Year
  Sex: Female
  Weight: 74.25 kg

DRUGS (19)
  1. CALCIUM [Concomitant]
     Active Substance: CALCIUM
  2. IBRANCE [Suspect]
     Active Substance: PALBOCICLIB
     Indication: BREAST CANCER
     Route: 048
     Dates: start: 20171212
  3. CLONAZEPAM. [Concomitant]
     Active Substance: CLONAZEPAM
  4. LISINOPRIL. [Concomitant]
     Active Substance: LISINOPRIL
  5. RANITIDINE. [Concomitant]
     Active Substance: RANITIDINE
  6. METHYLPREDNISONE [Concomitant]
     Active Substance: METHYLPREDNISOLONE
  7. VITAMIN B12 [Concomitant]
     Active Substance: CYANOCOBALAMIN
  8. AMLODIPINE [Concomitant]
     Active Substance: AMLODIPINE BESYLATE
  9. CLARITIN [Concomitant]
     Active Substance: LORATADINE
  10. ONDANSETRON [Concomitant]
     Active Substance: ONDANSETRON
  11. PROCHLORPERAZINE. [Concomitant]
     Active Substance: PROCHLORPERAZINE
  12. DILAUDID [Concomitant]
     Active Substance: HYDROMORPHONE HYDROCHLORIDE
  13. VANCOMYCIN [Concomitant]
     Active Substance: VANCOMYCIN
  14. VITAMIN D [Concomitant]
     Active Substance: CHOLECALCIFEROL
  15. BIOTIN [Concomitant]
     Active Substance: BIOTIN
  16. CLONIDINE. [Concomitant]
     Active Substance: CLONIDINE
  17. FERROUS GLUCONATE [Concomitant]
     Active Substance: FERROUS GLUCONATE
  18. LETROZOLE. [Concomitant]
     Active Substance: LETROZOLE
  19. PROMETHAZINE [Concomitant]
     Active Substance: PROMETHAZINE\PROMETHAZINE HYDROCHLORIDE

REACTIONS (2)
  - Nausea [None]
  - Fatigue [None]
